FAERS Safety Report 26013182 (Version 1)
Quarter: 2025Q4

REPORT INFORMATION
  Report Type: Spontaneous
  Country: US (occurrence: US)
  Receive Date: 20251107
  Receipt Date: 20251107
  Transmission Date: 20260117
  Serious: No
  Sender: JAZZ
  Company Number: US-JAZZ PHARMACEUTICALS-2025-US-014591

PATIENT
  Age: 14 Year
  Sex: Male

DRUGS (5)
  1. RYLAZE [Suspect]
     Active Substance: ASPARAGINASE ERWINIA CHRYSANTHEMI (RECOMBINANT)-RYWN
     Indication: Product use in unapproved indication
  2. FAMOTIDINE [Concomitant]
     Active Substance: FAMOTIDINE
  3. EPINEPHRINE [Concomitant]
     Active Substance: EPINEPHRINE
  4. DIPHENHYDRAMINE HYDROCHLORIDE [Concomitant]
     Active Substance: DIPHENHYDRAMINE HYDROCHLORIDE
  5. ZYRTEC [Concomitant]
     Active Substance: CETIRIZINE HYDROCHLORIDE

REACTIONS (2)
  - Penile pain [Unknown]
  - Urticaria [Unknown]

NARRATIVE: CASE EVENT DATE: 20250529
